FAERS Safety Report 8495674-2 (Version None)
Quarter: 2012Q3

REPORT INFORMATION
  Report Type: 
  Country: None (occurrence: None)
  Receive Date: 20120709
  Receipt Date: 20120703
  Transmission Date: 20120928
  Serious: No
  Sender: FDA-Public Use
  Company Number: US-PFIZER INC-2012161385

PATIENT
  Sex: Male
  Weight: 91 kg

DRUGS (6)
  1. PRILOSEC [Concomitant]
     Indication: DYSPEPSIA
     Dosage: UNK
  2. SUTENT [Suspect]
     Dosage: 37.5 MG, (25MG+12.5MG) DAILY
     Dates: start: 20120111
  3. SUTENT [Suspect]
     Indication: PANCREATIC NEUROENDOCRINE TUMOUR METASTATIC
     Dosage: 50 MG, UNK
     Dates: start: 20111201, end: 20111228
  4. LOSARTAN [Concomitant]
     Indication: BLOOD PRESSURE ABNORMAL
     Dosage: 100 MG, DAILY
  5. ACETAMINOPHEN [Concomitant]
     Indication: PAIN
     Dosage: UNK
  6. ACETAMINOPHEN [Concomitant]
     Indication: SLEEP DISORDER

REACTIONS (7)
  - HEARING IMPAIRED [None]
  - PHOTOSENSITIVITY REACTION [None]
  - ORAL PAIN [None]
  - DYSGEUSIA [None]
  - DIARRHOEA [None]
  - GASTROINTESTINAL PAIN [None]
  - HAIR COLOUR CHANGES [None]
